FAERS Safety Report 8987205 (Version 1)
Quarter: 2012Q4

REPORT INFORMATION
  Report Type: 
  Country: US (occurrence: US)
  Receive Date: 20121226
  Receipt Date: 20121226
  Transmission Date: 20130627
  Serious: No
  Sender: FDA-Public Use
  Company Number: US-PFIZER INC-2012269687

PATIENT
  Age: 32 Year
  Sex: Female
  Weight: 77.1 kg

DRUGS (10)
  1. NEURONTIN [Suspect]
     Indication: ANXIETY
     Dosage: 400 mg (800mg tablet into half), 3x/day
     Route: 048
     Dates: start: 201202, end: 2012
  2. NEURONTIN [Suspect]
     Indication: AFFECTIVE DISORDER
     Dosage: 600 mg, 3x/day
     Route: 048
     Dates: start: 2012, end: 2012
  3. NEURONTIN [Suspect]
     Dosage: 800 mg, 3x/day
     Route: 048
     Dates: start: 2012
  4. HALDOL [Suspect]
     Dosage: 5 mg, 2x/day
  5. PROZAC [Suspect]
     Dosage: 40 mg, daily
  6. KLONOPIN [Concomitant]
     Dosage: 0.5 mg, 3x/day
  7. TRAZODONE [Concomitant]
     Dosage: 300mg at night (HS)
  8. COGENTIN [Concomitant]
     Dosage: 2 mg, 2x/day
  9. GEODON [Concomitant]
     Dosage: 60 mg, 2x/day
  10. PROPRANOLOL [Concomitant]
     Dosage: 40mg at night (HS)

REACTIONS (12)
  - Fatigue [Unknown]
  - Anxiety [Unknown]
  - Off label use [Not Recovered/Not Resolved]
  - Drug ineffective for unapproved indication [Unknown]
  - Contusion [Not Recovered/Not Resolved]
  - Musculoskeletal pain [Not Recovered/Not Resolved]
  - Neck pain [Not Recovered/Not Resolved]
  - Myalgia [Not Recovered/Not Resolved]
  - Psychomotor hyperactivity [Not Recovered/Not Resolved]
  - Insomnia [Not Recovered/Not Resolved]
  - Weight increased [Unknown]
  - Musculoskeletal stiffness [Unknown]
